FAERS Safety Report 18726795 (Version 1)
Quarter: 2021Q1

REPORT INFORMATION
  Report Type: Spontaneous
  Country: GB (occurrence: GB)
  Receive Date: 20210112
  Receipt Date: 20210112
  Transmission Date: 20210419
  Serious: Yes (Other)
  Sender: FDA-Public Use
  Company Number: GB-AUROBINDO-AUR-APL-2021-000916

PATIENT
  Age: 86 Year

DRUGS (1)
  1. CLARITHROMYCIN FILM?COATED TABLETS 500MG [Suspect]
     Active Substance: CLARITHROMYCIN
     Indication: PRODUCT USED FOR UNKNOWN INDICATION
     Dosage: 500 MILLIGRAM
     Route: 065

REACTIONS (6)
  - Dizziness [Unknown]
  - Deafness [Unknown]
  - Hyperacusis [Unknown]
  - Tinnitus [Unknown]
  - Sleep disorder [Unknown]
  - Wrong technique in product usage process [Unknown]
